FAERS Safety Report 13318788 (Version 1)
Quarter: 2017Q1

REPORT INFORMATION
  Report Type: Spontaneous
  Country: US (occurrence: US)
  Receive Date: 20170309
  Receipt Date: 20170309
  Transmission Date: 20170428
  Serious: No
  Sender: FDA-Public Use
  Company Number: None

PATIENT
  Age: 57 Year
  Sex: Female

DRUGS (1)
  1. COPAXONE [Suspect]
     Active Substance: GLATIRAMER ACETATE
     Indication: MULTIPLE SCLEROSIS

REACTIONS (6)
  - Fatigue [None]
  - Visual impairment [None]
  - Paraesthesia [None]
  - Gait disturbance [None]
  - Hypoaesthesia [None]
  - Depression [None]

NARRATIVE: CASE EVENT DATE: 20170309
